FAERS Safety Report 4311345-8 (Version None)
Quarter: 2004Q1

REPORT INFORMATION
  Report Type: 
  Country: None (occurrence: None)
  Receive Date: 20040302
  Receipt Date: 20030120
  Transmission Date: 20041129
  Serious: Yes (Life-Threatening)
  Sender: FDA-Public Use
  Company Number: BDI-004819

PATIENT
  Age: 32 Year
  Sex: Female

DRUGS (1)
  1. ISOVUE-250 [Suspect]
     Indication: COMPUTERISED TOMOGRAM
     Dosage: 10 ML ONCE IV
     Dates: start: 20030117, end: 20030117

REACTIONS (1)
  - RESPIRATORY ARREST [None]
